FAERS Safety Report 6554984-6 (Version None)
Quarter: 2010Q1

REPORT INFORMATION
  Report Type: 
  Country: None (occurrence: None)
  Receive Date: 20100126
  Receipt Date: 20100126
  Transmission Date: 20100710
  Serious: Yes (Hospitalization, Disabling)
  Sender: FDA-Public Use
  Company Number: None

PATIENT
  Age: 67 Year
  Sex: Female

DRUGS (1)
  1. HEPARIN [Suspect]
     Indication: ACUTE MYOCARDIAL INFARCTION
     Dosage: 19 UNIT/KG/HR CONTINUOUS DRIP IV DRIP
     Route: 041
     Dates: start: 20091008, end: 20091014

REACTIONS (1)
  - EPISTAXIS [None]
